FAERS Safety Report 16730872 (Version 7)
Quarter: 2021Q1

REPORT INFORMATION
  Report Type: Report from Study
  Country: CA (occurrence: CA)
  Receive Date: 20190822
  Receipt Date: 20210301
  Transmission Date: 20210419
  Serious: Yes (Other)
  Sender: FDA-Public Use
  Company Number: PHHY2012CA035840

PATIENT
  Age: 48 Year
  Sex: Male

DRUGS (5)
  1. SANDOSTATIN LAR DEPOT [Suspect]
     Active Substance: OCTREOTIDE ACETATE
     Dosage: 30 MG, Q3W
     Route: 030
     Dates: start: 20120214
  2. SANDOSTATIN LAR DEPOT [Suspect]
     Active Substance: OCTREOTIDE ACETATE
     Indication: ACROMEGALY
     Dosage: 30 MG, Q3W
     Route: 030
     Dates: start: 20030501
  3. VOLTAREN [Concomitant]
     Active Substance: DICLOFENAC SODIUM
     Indication: PRODUCT USED FOR UNKNOWN INDICATION
     Dosage: UNK
     Route: 065
  4. SANDOSTATIN LAR DEPOT [Suspect]
     Active Substance: OCTREOTIDE ACETATE
     Dosage: 30 MG, Q3W
     Route: 030
     Dates: start: 20180303
  5. SANDOSTATIN LAR DEPOT [Suspect]
     Active Substance: OCTREOTIDE ACETATE
     Dosage: 30 MG, Q3W
     Route: 030
     Dates: start: 20180928

REACTIONS (29)
  - Blood pressure systolic increased [Unknown]
  - Blood pressure diastolic decreased [Unknown]
  - Needle issue [Unknown]
  - Pain [Unknown]
  - Memory impairment [Unknown]
  - Pyrexia [Recovered/Resolved]
  - Affective disorder [Recovering/Resolving]
  - Headache [Unknown]
  - Heart rate decreased [Unknown]
  - Localised infection [Unknown]
  - Arthralgia [Unknown]
  - Heart rate increased [Recovered/Resolved]
  - Depression [Unknown]
  - Plantar fasciitis [Recovering/Resolving]
  - Blood pressure increased [Unknown]
  - Fatigue [Recovering/Resolving]
  - Injection site discomfort [Unknown]
  - Back pain [Recovered/Resolved]
  - Dry mouth [Unknown]
  - Blood testosterone decreased [Recovering/Resolving]
  - Palpitations [Recovered/Resolved]
  - Blood growth hormone increased [Unknown]
  - Eructation [Unknown]
  - Injection site pain [Unknown]
  - Inappropriate schedule of product administration [Unknown]
  - Neuralgia [Recovered/Resolved]
  - Dyspnoea [Recovered/Resolved]
  - Flatulence [Unknown]
  - Abdominal distension [Unknown]

NARRATIVE: CASE EVENT DATE: 20120330
